FAERS Safety Report 5902072-1 (Version None)
Quarter: 2008Q3

REPORT INFORMATION
  Report Type: 
  Country: None (occurrence: None)
  Receive Date: 20080929
  Receipt Date: 20080917
  Transmission Date: 20090109
  Serious: Yes (Other)
  Sender: FDA-Public Use
  Company Number: DE-PFIZER INC-2007078098

PATIENT
  Age: 80 Year
  Sex: Male
  Weight: 80 kg

DRUGS (3)
  1. HUMATROPE [Suspect]
     Indication: HYPOPITUITARISM
     Route: 058
     Dates: start: 19960329, end: 20070711
  2. LISINOPRIL [Concomitant]
     Dosage: DAILY DOSE:2.5MG
     Dates: start: 20030315
  3. TAMSULOSIN HCL [Concomitant]
     Dosage: DAILY DOSE:.4MG
     Dates: start: 20000115, end: 20020820

REACTIONS (1)
  - PROSTATE CANCER [None]
